FAERS Safety Report 9430194 (Version 1)
Quarter: 2013Q3

REPORT INFORMATION
  Report Type: Spontaneous
  Country: MX (occurrence: MX)
  Receive Date: 20130730
  Receipt Date: 20130730
  Transmission Date: 20140515
  Serious: No
  Sender: FDA-Public Use
  Company Number: MX-JNJFOC-20130711366

PATIENT
  Age: 16 Year
  Sex: Female

DRUGS (3)
  1. DUROGESIC [Suspect]
     Indication: PAIN
     Route: 062
     Dates: start: 201205
  2. MORPHINE [Concomitant]
     Indication: PAIN
     Route: 065
     Dates: start: 201211
  3. RIVOTRIL [Concomitant]
     Indication: INSOMNIA
     Route: 048
     Dates: start: 201307

REACTIONS (2)
  - Drug dose omission [Not Recovered/Not Resolved]
  - Pain [Unknown]
